FAERS Safety Report 7055992-1 (Version None)
Quarter: 2010Q4

REPORT INFORMATION
  Report Type: 
  Country: None (occurrence: None)
  Receive Date: 20101021
  Receipt Date: 20101013
  Transmission Date: 20110411
  Serious: Yes (Other)
  Sender: FDA-Public Use
  Company Number: A0887638A

PATIENT
  Sex: Male

DRUGS (1)
  1. AVANDIA [Suspect]
     Dates: start: 20030301, end: 20090701

REACTIONS (2)
  - AORTIC VALVE REPLACEMENT [None]
  - CARDIAC FAILURE CONGESTIVE [None]
